FAERS Safety Report 7736259-2 (Version None)
Quarter: 2011Q3

REPORT INFORMATION
  Report Type: 
  Country: None (occurrence: None)
  Receive Date: 20110902
  Receipt Date: 20110822
  Transmission Date: 20111222
  Serious: Yes (Other)
  Sender: FDA-Public Use
  Company Number: M1103727

PATIENT
  Age: 90 Year
  Sex: Male

DRUGS (9)
  1. FISH OIL(FISH OIL) [Concomitant]
  2. DIOVAN [Concomitant]
  3. ICAPS (VITAMINS NOS, MINERALS NOS) [Concomitant]
  4. PACERONE [Suspect]
     Indication: CARDIAC DISORDER
     Dosage: 1 IN 1 D, ORAL
     Route: 048
     Dates: start: 20091201
  5. LASIX [Concomitant]
  6. NITROGLYCERIN [Concomitant]
  7. NORVASC [Concomitant]
  8. KLOR-CON [Concomitant]
  9. TOPROL-XL [Concomitant]

REACTIONS (2)
  - PLATELET COUNT DECREASED [None]
  - LEUKAEMIA [None]
